FAERS Safety Report 12369072 (Version 5)
Quarter: 2016Q2

REPORT INFORMATION
  Report Type: Spontaneous
  Country: CN (occurrence: CN)
  Receive Date: 20160513
  Receipt Date: 20160617
  Transmission Date: 20160815
  Serious: Yes (Hospitalization, Other)
  Sender: FDA-Public Use
  Company Number: CN-009507513-1412CHN002598

PATIENT
  Age: 58 Year
  Sex: Male
  Weight: 65.5 kg

DRUGS (29)
  1. HEMOCOAGULASE [Concomitant]
     Indication: PROPHYLAXIS
     Dosage: 10 MG, ONCE
     Route: 038
     Dates: start: 20141102, end: 20141102
  2. HEMOCOAGULASE [Concomitant]
     Dosage: 4 UNITS, ONCE
     Route: 041
     Dates: start: 20141109, end: 20141109
  3. DEXAMETHASONE ACETATE [Concomitant]
     Active Substance: DEXAMETHASONE ACETATE
     Indication: VOMITING
     Dosage: 6 MG DAILY DOSE, ONCE
     Route: 048
     Dates: start: 20141106, end: 20141106
  4. TROPISETRON HYDROCHLORIDE [Concomitant]
     Active Substance: TROPISETRON HYDROCHLORIDE
     Dosage: TOTAL DAILY DOSE: 100 ML/CC, QD
     Route: 041
     Dates: start: 20141106, end: 20141109
  5. REDUCED GLUTATHIONE FOR INJECTION [Concomitant]
     Indication: ADJUVANT THERAPY
  6. FLUOROURACIL. [Concomitant]
     Active Substance: FLUOROURACIL
     Indication: NEOPLASM MALIGNANT
     Dosage: 1 G, D1, 4-5
     Route: 041
     Dates: start: 20141031, end: 20141104
  7. ALBUMIN HUMAN [Concomitant]
     Active Substance: ALBUMIN HUMAN
     Indication: SUPPLEMENTATION THERAPY
     Dosage: DAILY DOSE 10G,ONCE
     Route: 041
     Dates: start: 20141102, end: 20141102
  8. ALBUMIN HUMAN [Concomitant]
     Active Substance: ALBUMIN HUMAN
     Dosage: 10G DAILY DOSE, QD
     Route: 041
     Dates: start: 20141106, end: 20141109
  9. COMPLETE ENTERAL NUTRITION EMULSION [Concomitant]
     Indication: NUTRITIONAL SUPPLEMENTATION
     Dosage: TOTAL DAILY DOSE 1500 ML/CC, ONCE
     Route: 048
     Dates: start: 20141109, end: 20141109
  10. EMEND [Suspect]
     Active Substance: APREPITANT
     Indication: PROPHYLAXIS OF NAUSEA AND VOMITING
     Dosage: 125 MG,ONCE, DAY 1
     Route: 048
     Dates: start: 20141106, end: 20141106
  11. ALBUMIN HUMAN [Concomitant]
     Active Substance: ALBUMIN HUMAN
     Indication: SUPPLEMENTATION THERAPY
     Dosage: 10 G, ONCE
     Route: 041
     Dates: start: 20141103, end: 20141103
  12. RECOMBINANT HUMAN ENDOSTATIN [Concomitant]
     Active Substance: ENDOSTATIN
     Indication: CHEMOTHERAPY
  13. THYMALFASIN [Concomitant]
     Active Substance: THYMALFASIN
     Indication: IMMUNE ENHANCEMENT THERAPY
     Dosage: 1.6 MG, ONCE
     Route: 058
     Dates: start: 20141030, end: 20141030
  14. CISPLATIN. [Suspect]
     Active Substance: CISPLATIN
     Indication: CHEMOTHERAPY
     Dosage: 30 MG, DAY 1, TREATMENT CYCLE: 1/ UNK
     Route: 041
     Dates: start: 20141106, end: 20141106
  15. THYMALFASIN [Concomitant]
     Active Substance: THYMALFASIN
     Dosage: 1.6 MG, ONCE
     Route: 058
     Dates: start: 20141106, end: 20141106
  16. CHYMOTRYPSIN [Concomitant]
     Active Substance: CHYMOTRYPSIN
     Indication: PROPHYLAXIS
     Dosage: 4000, UNITS, BID
     Route: 055
     Dates: start: 20141108, end: 20141108
  17. CHYMOTRYPSIN [Concomitant]
     Active Substance: CHYMOTRYPSIN
     Indication: UPPER RESPIRATORY TRACT INFECTION
     Dosage: 4000, UNITS, ONCE
     Route: 055
     Dates: start: 20141109, end: 20141109
  18. TROPISETRON HYDROCHLORIDE [Concomitant]
     Active Substance: TROPISETRON HYDROCHLORIDE
     Dosage: TOTAL DAILY DOSE: 100 ML/CC, QD
     Route: 041
     Dates: start: 20141030, end: 20141105
  19. METOCLOPRAMIDE HYDROCHLORIDE. [Concomitant]
     Active Substance: METOCLOPRAMIDE HYDROCHLORIDE
     Indication: PROPHYLAXIS OF NAUSEA AND VOMITING
     Dosage: DAILY DOSE: 10 UG/MCG,QD
     Route: 041
     Dates: start: 20141031, end: 20141108
  20. RECOMBINANT HUMAN ENDOSTATIN [Concomitant]
     Active Substance: ENDOSTATIN
     Indication: ADJUVANT THERAPY
     Dosage: DAILY DOSE: 45 ML/CC, QOD
     Route: 038
     Dates: start: 20141103, end: 20141107
  21. CHYMOTRYPSIN [Concomitant]
     Active Substance: CHYMOTRYPSIN
     Indication: PNEUMONIA
     Dosage: 4000, UNITS, ONCE
     Route: 055
     Dates: start: 20141031, end: 20141101
  22. EMEND [Suspect]
     Active Substance: APREPITANT
     Dosage: 80 MG,ONCE, DAY 2
     Route: 048
     Dates: start: 20141107, end: 20141107
  23. TROPISETRON HYDROCHLORIDE [Concomitant]
     Active Substance: TROPISETRON HYDROCHLORIDE
     Indication: VOMITING
     Dosage: TOTAL DAILY DOSE: 100 ML/CC, QD
     Route: 041
     Dates: start: 20141030, end: 20141101
  24. HEMOCOAGULASE [Concomitant]
     Dosage: 20 MG, ONCE
     Route: 041
     Dates: start: 20141106, end: 20141106
  25. REDUCED GLUTATHIONE FOR INJECTION [Concomitant]
     Indication: CHEMOTHERAPY
     Dosage: 1.8G DAILY DOSE, QD
     Route: 041
     Dates: start: 20141030, end: 20141108
  26. ALBUMIN HUMAN [Concomitant]
     Active Substance: ALBUMIN HUMAN
     Dosage: 20 G DAILY DOSE, QD
     Route: 041
     Dates: start: 20141104, end: 20141105
  27. EMEND [Suspect]
     Active Substance: APREPITANT
     Dosage: 80 MG,ONCE, DAY 3
     Route: 048
     Dates: start: 20141108, end: 20141108
  28. THYMALFASIN [Concomitant]
     Active Substance: THYMALFASIN
     Dosage: DAILY DOSAGE: 1.6 MG, QOD
     Route: 058
     Dates: start: 20141117
  29. DEXAMETHASONE ACETATE [Concomitant]
     Active Substance: DEXAMETHASONE ACETATE
     Dosage: 3.75 MG DAILY DOSE, QD
     Route: 048
     Dates: start: 20141107, end: 20141109

REACTIONS (3)
  - Intestinal obstruction [Not Recovered/Not Resolved]
  - Blood albumin decreased [Not Recovered/Not Resolved]
  - Chest discomfort [Unknown]

NARRATIVE: CASE EVENT DATE: 20141114
